FAERS Safety Report 23502277 (Version 1)
Quarter: 2024Q1

REPORT INFORMATION
  Report Type: Spontaneous
  Country: US (occurrence: US)
  Receive Date: 20240208
  Receipt Date: 20240208
  Transmission Date: 20240409
  Serious: Yes (Hospitalization, Other)
  Sender: FDA-Public Use
  Company Number: US-ADMA BIOLOGICS INC.-US-2023ADM000195

PATIENT
  Age: 85 Year
  Sex: Female
  Weight: 76.644 kg

DRUGS (21)
  1. BIVIGAM [Suspect]
     Active Substance: HUMAN IMMUNOGLOBULIN G
     Indication: Myasthenia gravis
     Dosage: 30 GRAM, 5 DAYS EVERY 4 WEEKS
     Route: 042
     Dates: start: 20230726, end: 20230730
  2. BIVIGAM [Suspect]
     Active Substance: HUMAN IMMUNOGLOBULIN G
     Dosage: 30 GRAM, 5 DAYS EVERY 4 WEEKS(10%, 10 GM VIALS)
     Route: 042
     Dates: start: 20230905, end: 20230906
  3. ACETAMINOPHEN [Concomitant]
     Active Substance: ACETAMINOPHEN
     Indication: Premedication
     Dosage: 30M PRIOR TO EACH INFUSION
     Route: 042
     Dates: start: 20230726, end: 20230730
  4. ACETAMINOPHEN [Concomitant]
     Active Substance: ACETAMINOPHEN
     Dosage: 30M PRIOR TO EACH INFUSION
     Route: 042
     Dates: start: 20230905, end: 202309
  5. DIPHENHYDRAMINE [Concomitant]
     Active Substance: DIPHENHYDRAMINE
     Indication: Premedication
     Dosage: 30M PRIOR TO EACH INFUSION
     Route: 065
     Dates: start: 20230726, end: 20230730
  6. DIPHENHYDRAMINE [Concomitant]
     Active Substance: DIPHENHYDRAMINE
     Dosage: 30M PRIOR TO EACH INFUSION
     Route: 065
     Dates: start: 20230905, end: 202309
  7. FAMOTIDINE [Concomitant]
     Active Substance: FAMOTIDINE
     Indication: Premedication
     Dosage: 30M PRIOR TO EACH INFUSION
     Route: 042
     Dates: start: 20230726, end: 20230730
  8. FAMOTIDINE [Concomitant]
     Active Substance: FAMOTIDINE
     Dosage: 30M PRIOR TO EACH INFUSION
     Route: 042
     Dates: start: 20230905, end: 202309
  9. DEXAMETHASONE [Concomitant]
     Active Substance: DEXAMETHASONE
     Indication: Premedication
     Dosage: OVER 3 TO 5 MINUTES, 30M PRIOR TO EACH INFUSION
     Route: 042
     Dates: start: 20230726, end: 20230730
  10. DEXAMETHASONE [Concomitant]
     Active Substance: DEXAMETHASONE
     Dosage: OVER 3 TO 5 MINUTES, 30M PRIOR TO EACH INFUSION
     Route: 042
     Dates: start: 20230905, end: 202309
  11. SODIUM CHLORIDE [Concomitant]
     Active Substance: SODIUM CHLORIDE
     Indication: Premedication
     Dosage: STRENGTH 0.9% 250 ML, OVER AT LEAST AN HOUR PRIOR TO EACH INFUSION
     Route: 040
     Dates: start: 20230726, end: 20230730
  12. SODIUM CHLORIDE [Concomitant]
     Active Substance: SODIUM CHLORIDE
     Dosage: STRENGTH : 0.9% 250 ML, OVER AT LEAST AN HOUR PRIOR TO EACH INFUSION
     Route: 040
     Dates: start: 20230905, end: 202309
  13. PYRIDOSTIGMINE BROMIDE [Concomitant]
     Active Substance: PYRIDOSTIGMINE BROMIDE
     Indication: Product used for unknown indication
     Dosage: UNK
     Route: 048
  14. ONDANSETRON HYDROCHLORIDE [Concomitant]
     Active Substance: ONDANSETRON HYDROCHLORIDE
     Indication: Product used for unknown indication
     Dosage: UNK
     Route: 065
  15. MELATONIN [Concomitant]
     Active Substance: MELATONIN
     Indication: Product used for unknown indication
     Route: 048
  16. LANTUS [Concomitant]
     Active Substance: INSULIN GLARGINE
     Indication: Product used for unknown indication
     Dosage: UNK
     Route: 058
  17. ALBUTEROL SULFATE\IPRATROPIUM BROMIDE [Concomitant]
     Active Substance: ALBUTEROL SULFATE\IPRATROPIUM BROMIDE
     Indication: Product used for unknown indication
     Dosage: INHALATION USE
  18. GUAIFENESIN [Concomitant]
     Active Substance: GUAIFENESIN
     Indication: Product used for unknown indication
     Dosage: STRENGTH: 200MG/10ML
     Route: 048
  19. FUROSEMIDE [Concomitant]
     Active Substance: FUROSEMIDE
     Indication: Product used for unknown indication
     Route: 048
  20. CHOLESTYRAMINE [Concomitant]
     Active Substance: CHOLESTYRAMINE
     Indication: Product used for unknown indication
     Dosage: LIGHT ORAL PACKET
     Route: 048
  21. ARTIFICIAL TEARS (GLYCERIN\HYPROMELLOSES\POLYETHYLENE GLYCOL 400) [Concomitant]
     Active Substance: GLYCERIN\HYPROMELLOSES\POLYETHYLENE GLYCOL 400
     Indication: Product used for unknown indication
     Route: 047

REACTIONS (3)
  - Pneumonia [Unknown]
  - Respiratory distress [Unknown]
  - Off label use [Unknown]

NARRATIVE: CASE EVENT DATE: 20230726
